FAERS Safety Report 20095148 (Version 1)
Quarter: 2021Q4

REPORT INFORMATION
  Report Type: Other
  Country: US (occurrence: None)
  Receive Date: 20211122
  Receipt Date: 20211122
  Transmission Date: 20220304
  Serious: Yes (Other)
  Sender: FDA-Public Use
  Company Number: US-ROCHE-2956866

PATIENT
  Sex: Female

DRUGS (1)
  1. CELLCEPT [Suspect]
     Active Substance: MYCOPHENOLATE MOFETIL\MYCOPHENOLATE MOFETIL HYDROCHLORIDE
     Indication: Renal transplant
     Dosage: 2 CAPS BID
     Route: 048

REACTIONS (8)
  - Renal impairment [Unknown]
  - Amnesia [Unknown]
  - Abdominal pain upper [Unknown]
  - Chest pain [Unknown]
  - Headache [Unknown]
  - Polyuria [Unknown]
  - Diarrhoea [Unknown]
  - Off label use [Unknown]
